FAERS Safety Report 10136261 (Version 2)
Quarter: 2014Q2

REPORT INFORMATION
  Report Type: Spontaneous
  Country: US (occurrence: US)
  Receive Date: 20140429
  Receipt Date: 20140512
  Transmission Date: 20141212
  Serious: Yes (Other)
  Sender: FDA-Public Use
  Company Number: US-ROCHE-1389733

PATIENT
  Sex: 0

DRUGS (3)
  1. XOLAIR [Suspect]
     Indication: CHRONIC SPONTANEOUS URTICARIA
     Route: 058
  2. XOLAIR [Suspect]
     Route: 065
     Dates: start: 20120217
  3. PREDNISONE [Concomitant]

REACTIONS (2)
  - Anaphylactic reaction [Unknown]
  - Off label use [Unknown]
